FAERS Safety Report 7813310-2 (Version None)
Quarter: 2011Q4

REPORT INFORMATION
  Report Type: 
  Country: None (occurrence: None)
  Receive Date: 20111013
  Receipt Date: 20110927
  Transmission Date: 20120403
  Serious: No
  Sender: FDA-Public Use
  Company Number: US-BAYER-2011-091640

PATIENT
  Age: 21 Year
  Sex: Female

DRUGS (1)
  1. BEYAZ [Suspect]
     Dosage: UNK
     Dates: start: 20110901

REACTIONS (1)
  - METRORRHAGIA [None]
